FAERS Safety Report 20619575 (Version 1)
Quarter: 2022Q1

REPORT INFORMATION
  Report Type: Spontaneous
  Country: FR (occurrence: None)
  Receive Date: 20220322
  Receipt Date: 20220322
  Transmission Date: 20220423
  Serious: Yes (Other)
  Sender: FDA-Public Use
  Company Number: None

PATIENT
  Age: 48 Year
  Sex: Male
  Weight: 83 kg

DRUGS (6)
  1. TOCILIZUMAB [Suspect]
     Active Substance: TOCILIZUMAB
     Indication: COVID-19
     Route: 042
     Dates: start: 20220104, end: 20220104
  2. SPIRAMYCIN [Suspect]
     Active Substance: SPIRAMYCIN
     Indication: COVID-19
     Route: 042
     Dates: start: 20211231, end: 20220105
  3. CEFOTAXIME [Suspect]
     Active Substance: CEFOTAXIME SODIUM
     Indication: COVID-19
     Route: 042
     Dates: start: 20211231, end: 20220105
  4. LOVENOX [Concomitant]
     Active Substance: ENOXAPARIN SODIUM
  5. DEXAMETHASONE [Concomitant]
     Active Substance: DEXAMETHASONE
  6. URAPIDIL [Concomitant]
     Active Substance: URAPIDIL

REACTIONS (1)
  - Erythema [Recovered/Resolved]

NARRATIVE: CASE EVENT DATE: 20220105
